FAERS Safety Report 13754974 (Version 4)
Quarter: 2017Q4

REPORT INFORMATION
  Report Type: Spontaneous
  Country: BR (occurrence: BR)
  Receive Date: 20170714
  Receipt Date: 20171023
  Transmission Date: 20180320
  Serious: Yes (Hospitalization)
  Sender: FDA-Public Use
  Company Number: BR-009507513-1707BRA002060

PATIENT
  Age: 4 Year
  Sex: Male
  Weight: 19 kg

DRUGS (6)
  1. NASONEX [Suspect]
     Active Substance: MOMETASONE FUROATE
     Dosage: 1 ATOMIZATION IN EACH NOSTRIL, TWICE A DAY
     Route: 045
     Dates: start: 2015
  2. AEROLIN [Concomitant]
     Active Substance: ALBUTEROL
     Dosage: TWO ORAL INHALATIONS EACH 4 HOURS WHEN NECESSARY
     Route: 055
     Dates: start: 201501
  3. MONTELAIR [Concomitant]
     Active Substance: MONTELUKAST SODIUM
     Dosage: 1 CHEW TABLET A DAY
     Route: 048
     Dates: start: 2016
  4. NASONEX [Suspect]
     Active Substance: MOMETASONE FUROATE
     Indication: RHINITIS
     Dosage: 1 ATOMIZATION IN EACH NOSTRIL, TWICE A DAY
     Route: 045
     Dates: start: 201705
  5. SERETIDE [Concomitant]
     Active Substance: FLUTICASONE PROPIONATE\SALMETEROL XINAFOATE
     Dosage: 1 DF, BID
     Route: 055
     Dates: start: 2016
  6. ALLEGRA [Concomitant]
     Active Substance: FEXOFENADINE HYDROCHLORIDE
     Dosage: 5 ML, BID
     Route: 048
     Dates: start: 201501

REACTIONS (1)
  - Disease complication [Not Recovered/Not Resolved]

NARRATIVE: CASE EVENT DATE: 201706
